FAERS Safety Report 8011784-8 (Version None)
Quarter: 2011Q4

REPORT INFORMATION
  Report Type: 
  Country: None (occurrence: None)
  Receive Date: 20111228
  Receipt Date: 20111219
  Transmission Date: 20120403
  Serious: Yes (Death)
  Sender: FDA-Public Use
  Company Number: US-PFIZER INC-2011309662

PATIENT
  Age: 53 Year
  Sex: Female

DRUGS (6)
  1. TOPIRAMATE [Suspect]
  2. DOXEPIN HCL [Suspect]
  3. DULOXETINE HYDROCHLORIDE [Suspect]
  4. CITALOPRAM HYDROBROMIDE [Suspect]
  5. LITHIUM CARBONATE [Suspect]
  6. ALPRAZOLAM [Suspect]

REACTIONS (3)
  - COMPLETED SUICIDE [None]
  - RESPIRATORY ARREST [None]
  - CARDIAC ARREST [None]
